FAERS Safety Report 22067119 (Version 1)
Quarter: 2023Q1

REPORT INFORMATION
  Report Type: Spontaneous
  Country: US (occurrence: US)
  Receive Date: 20230307
  Receipt Date: 20230307
  Transmission Date: 20230418
  Serious: No
  Sender: FDA-Public Use
  Company Number: US-ELI_LILLY_AND_COMPANY-US202303000972

PATIENT
  Age: 6 Year
  Sex: Female

DRUGS (1)
  1. HUMALOG JUNIOR KWIKPEN [Suspect]
     Active Substance: INSULIN LISPRO
     Indication: Type 1 diabetes mellitus
     Dosage: UNK UNK, UNKNOWN
     Route: 065

REACTIONS (2)
  - Blood glucose increased [Unknown]
  - Incorrect dose administered [Unknown]

NARRATIVE: CASE EVENT DATE: 20230227
